FAERS Safety Report 23380533 (Version 1)
Quarter: 2024Q1

REPORT INFORMATION
  Report Type: Spontaneous
  Country: GB (occurrence: GB)
  Receive Date: 20240109
  Receipt Date: 20240109
  Transmission Date: 20240410
  Serious: No
  Sender: FDA-Public Use
  Company Number: None

PATIENT
  Age: 21 Year
  Sex: Male
  Weight: 83 kg

DRUGS (7)
  1. IBUPROFEN [Suspect]
     Active Substance: IBUPROFEN
     Indication: Product used for unknown indication
     Dosage: 200 MILLIGRAM (TABLET)
     Route: 065
  2. FLUTICASONE FUROATE\SALMETEROL XINAFOATE [Concomitant]
     Active Substance: FLUTICASONE FUROATE\SALMETEROL XINAFOATE
     Indication: Product used for unknown indication
     Dosage: 1 DOSAGE FORM, BID (INHALE 1 DOSE TWICE DAILY)
     Dates: start: 20211206
  3. BETAMETHASONE VALERATE [Concomitant]
     Active Substance: BETAMETHASONE VALERATE
     Indication: Product used for unknown indication
     Dosage: UNK, BID (MODERATE POTENCY STEROID CREAM - APPLY TWICE A...)
     Route: 065
     Dates: start: 20230907
  4. CLOBETASONE BUTYRATE [Concomitant]
     Active Substance: CLOBETASONE BUTYRATE
     Indication: Product used for unknown indication
     Dosage: UNK, QD APPLY (1-2 TIMES/DAY FOR NO LONGER THAN 10 DAYS)
     Route: 065
     Dates: start: 20230803, end: 20230810
  5. FLUCLOXACILLIN [Concomitant]
     Active Substance: FLUCLOXACILLIN
     Indication: Product used for unknown indication
     Dosage: UNK, QID (TAKE ONE 4 TIMES/DAY)
     Route: 065
     Dates: start: 20230909, end: 20230916
  6. PREDNISOLONE [Concomitant]
     Active Substance: PREDNISOLONE
     Indication: Product used for unknown indication
     Dosage: UNK (U)
     Route: 065
     Dates: start: 20230922
  7. BENZALKONIUM CHLORIDE\DIMETHICONE\HYDROCORTISONE\NYSTATIN [Concomitant]
     Active Substance: BENZALKONIUM CHLORIDE\DIMETHICONE\HYDROCORTISONE\NYSTATIN
     Indication: Product used for unknown indication
     Dosage: UNK, TID (APPLY 3 TIMES/DAY UNTIL THE LESIONS HAVE HEALED)
     Route: 065
     Dates: start: 20230907, end: 20230921

REACTIONS (1)
  - Dermatitis allergic [Not Recovered/Not Resolved]
